FAERS Safety Report 9129437 (Version 1)
Quarter: 2013Q1

REPORT INFORMATION
  Report Type: Spontaneous
  Country: US (occurrence: US)
  Receive Date: 20130228
  Receipt Date: 20130228
  Transmission Date: 20140127
  Serious: Yes (Other)
  Sender: FDA-Public Use
  Company Number: US-PFIZER INC-2013069951

PATIENT
  Age: 65 Year
  Sex: Male
  Weight: 101 kg

DRUGS (5)
  1. CHANTIX [Suspect]
     Indication: SMOKING CESSATION THERAPY
     Dosage: 0.5 MG, 1X/DAY
     Route: 048
  2. CHANTIX [Suspect]
     Dosage: UNK
     Route: 048
  3. MORPHINE [Concomitant]
     Indication: PAIN
     Dosage: 20 MG, 2X/DAY
  4. WELLBUTRIN [Concomitant]
     Indication: DEPRESSION
     Dosage: UNK
  5. NORCO [Concomitant]
     Dosage: 10 MG, UNK

REACTIONS (3)
  - Weight increased [Unknown]
  - Abnormal dreams [Unknown]
  - Body height decreased [Unknown]
